FAERS Safety Report 5146990-3 (Version None)
Quarter: 2006Q4

REPORT INFORMATION
  Report Type: 
  Country: None (occurrence: None)
  Receive Date: 20061103
  Receipt Date: 20061023
  Transmission Date: 20070319
  Serious: Yes (Disabling, Other)
  Sender: FDA-Public Use
  Company Number: 2006097195

PATIENT
  Age: 35 Year
  Sex: Female

DRUGS (4)
  1. DOSTINEX [Suspect]
     Indication: HYPERPROLACTINAEMIA
     Dosage: (0.5 MG, 2 IN 1 WK), ORAL
     Route: 048
  2. MIRTAZAPINE [Concomitant]
  3. TRAZODONE HCL [Concomitant]
  4. CLINDAMYCIN HCL [Suspect]
     Indication: INFECTION

REACTIONS (4)
  - DRUG INTERACTION [None]
  - HALLUCINATION, AUDITORY [None]
  - HALLUCINATION, VISUAL [None]
  - MAJOR DEPRESSION [None]
